FAERS Safety Report 15160049 (Version 2)
Quarter: 2018Q3

REPORT INFORMATION
  Report Type: Report from Study
  Country: JP (occurrence: JP)
  Receive Date: 20180718
  Receipt Date: 20180831
  Transmission Date: 20181010
  Serious: Yes (Hospitalization, Other)
  Sender: FDA-Public Use
  Company Number: JP-SA-2018SA182183

PATIENT
  Age: 70 Year
  Sex: Male
  Weight: 53.2 kg

DRUGS (6)
  1. LEUCOVORIN CA [Suspect]
     Active Substance: LEUCOVORIN CALCIUM
     Indication: RECTAL CANCER
     Dosage: 200 MG/M2
     Route: 065
     Dates: start: 20180326
  2. CEFTRIAXONE SODIUM. [Concomitant]
     Active Substance: CEFTRIAXONE SODIUM
     Indication: PRODUCT USED FOR UNKNOWN INDICATION
     Dosage: UNK
     Route: 042
     Dates: start: 20180411
  3. AFLIBERCEPT [Suspect]
     Active Substance: AFLIBERCEPT
     Indication: RECTAL CANCER
     Dosage: 4 MG/KG
     Route: 041
     Dates: start: 20180326
  4. IRINOTECAN HYDROCHLORIDE. [Suspect]
     Active Substance: IRINOTECAN HYDROCHLORIDE
     Indication: RECTAL CANCER
     Dosage: 150 MG/M2
     Route: 065
     Dates: start: 20180326
  5. FLUOROURACIL ^RHONE?POULENC^ [Concomitant]
     Dosage: 2400 MG/M2
     Route: 041
     Dates: start: 20180326
  6. FLUOROURACIL ^RHONE?POULENC^ [Concomitant]
     Indication: RECTAL CANCER
     Dosage: 400 MG/M2
     Route: 040
     Dates: start: 20180326

REACTIONS (3)
  - Pyrexia [Recovering/Resolving]
  - Malaise [Recovering/Resolving]
  - Interstitial lung disease [Recovering/Resolving]

NARRATIVE: CASE EVENT DATE: 20180409
